FAERS Safety Report 4808980-7 (Version None)
Quarter: 2005Q4

REPORT INFORMATION
  Report Type: 
  Country: None (occurrence: None)
  Receive Date: 20051025
  Receipt Date: 20051014
  Transmission Date: 20060501
  Serious: Yes (Hospitalization)
  Sender: FDA-Public Use
  Company Number: FR-ROCHE-421384

PATIENT
  Age: 18 Year
  Sex: Male

DRUGS (1)
  1. ROACCUTANE [Suspect]
     Indication: ACNE
     Route: 048
     Dates: start: 20010615

REACTIONS (4)
  - COUGH [None]
  - VERTIGO [None]
  - VIRAL INFECTION [None]
  - VOMITING [None]
